FAERS Safety Report 5079646-6 (Version None)
Quarter: 2006Q3

REPORT INFORMATION
  Report Type: 
  Country: None (occurrence: None)
  Receive Date: 20060808
  Receipt Date: 20060726
  Transmission Date: 20061208
  Serious: Yes (Life-Threatening)
  Sender: FDA-Public Use
  Company Number: 2003173232JP

PATIENT
  Age: 73 Year
  Sex: Male

DRUGS (9)
  1. IRINOTECAN HCL [Suspect]
     Indication: HEPATIC NEOPLASM MALIGNANT
     Dosage: SEE IMAGE
     Dates: start: 20030724, end: 20030724
  2. IRINOTECAN HCL [Suspect]
     Indication: HEPATIC NEOPLASM MALIGNANT
     Dosage: SEE IMAGE
     Dates: start: 20030724, end: 20030904
  3. FURTULON (DOXIFLURIDINE) [Concomitant]
  4. URSO 250 [Concomitant]
  5. GLYCYRON (AMINOACETIC ACID, DL-METHIONINE, GLYCYRRHIZIC ACID) [Concomitant]
  6. DILTIAZEM HYDROCHLORIDE [Concomitant]
  7. NEUQUINON (UBIDECARENONE) [Concomitant]
  8. ALDACTONE [Concomitant]
  9. LASIX [Concomitant]

REACTIONS (7)
  - ACQUIRED DIAPHRAGMATIC EVENTRATION [None]
  - ANAEMIA [None]
  - ATELECTASIS [None]
  - DISEASE PROGRESSION [None]
  - DRUG HYPERSENSITIVITY [None]
  - HEPATIC FAILURE [None]
  - INTERSTITIAL LUNG DISEASE [None]
